FAERS Safety Report 7389146-6 (Version None)
Quarter: 2011Q1

REPORT INFORMATION
  Report Type: 
  Country: None (occurrence: None)
  Receive Date: 20110324
  Receipt Date: 20110311
  Transmission Date: 20110831
  Serious: Yes (Hospitalization)
  Sender: FDA-Public Use
  Company Number: UTC-005260

PATIENT
  Age: 37 Year
  Sex: Male
  Weight: 69.3 kg

DRUGS (4)
  1. SEDACORON (AMIODARONE HYDROCHLORIDE) [Concomitant]
  2. REMODULIN [Suspect]
     Indication: PULMONARY ARTERIAL HYPERTENSION
     Dosage: 70.56 UG/KG (0.049 UG/KG, 1 IN 1 MIN), SUBCUTANEOUS
     Route: 058
  3. PANTOPRAZOLE SODIUM [Concomitant]
  4. SINTROM [Concomitant]

REACTIONS (6)
  - HYPOTENSION [None]
  - DIARRHOEA [None]
  - HAEMODIALYSIS [None]
  - RENAL FAILURE ACUTE [None]
  - DEHYDRATION [None]
  - GASTROINTESTINAL INFECTION [None]
